FAERS Safety Report 12339998 (Version 2)
Quarter: 2016Q3

REPORT INFORMATION
  Report Type: Spontaneous
  Country: DE (occurrence: DE)
  Receive Date: 20160506
  Receipt Date: 20160713
  Transmission Date: 20161109
  Serious: Yes (Life-Threatening)
  Sender: FDA-Public Use
  Company Number: DE-ASTRAZENECA-2016SE46791

PATIENT
  Sex: Male

DRUGS (2)
  1. BLOOD PRESSURE THERAPY [Concomitant]
     Indication: BLOOD PRESSURE ABNORMAL
  2. BRILIQUE [Suspect]
     Active Substance: TICAGRELOR
     Route: 048

REACTIONS (2)
  - Thrombophlebitis [Unknown]
  - Off label use [Unknown]
